FAERS Safety Report 6757665-9 (Version None)
Quarter: 2010Q2

REPORT INFORMATION
  Report Type: 
  Country: None (occurrence: None)
  Receive Date: 20100607
  Receipt Date: 20100604
  Transmission Date: 20101027
  Serious: Yes (Life-Threatening)
  Sender: FDA-Public Use
  Company Number: GB-JNJFOC-20100601411

PATIENT
  Age: 3 Month
  Sex: Female

DRUGS (3)
  1. DAKTARIN [Suspect]
     Route: 061
  2. DAKTARIN [Suspect]
     Indication: ORAL CANDIDIASIS
     Route: 061
  3. NYSTATIN [Suspect]
     Indication: ORAL CANDIDIASIS
     Route: 065

REACTIONS (4)
  - DRUG PRESCRIBING ERROR [None]
  - HYPERSENSITIVITY [None]
  - PARAESTHESIA ORAL [None]
  - RESPIRATORY ARREST [None]
